FAERS Safety Report 18486265 (Version 6)
Quarter: 2025Q4

REPORT INFORMATION
  Report Type: Report from Study
  Country: CA (occurrence: CA)
  Receive Date: 20201110
  Receipt Date: 20251216
  Transmission Date: 20260117
  Serious: Yes (Hospitalization, Other)
  Sender: BOEHRINGER INGELHEIM
  Company Number: CA-BOEHRINGERINGELHEIM-2020-BI-059674

PATIENT
  Age: 70 Year
  Sex: Female

DRUGS (15)
  1. ATROVENT [Suspect]
     Active Substance: IPRATROPIUM BROMIDE
     Indication: Product used for unknown indication
  2. TIOTROPIUM [Suspect]
     Active Substance: TIOTROPIUM
     Indication: Product used for unknown indication
  3. SYMBICORT [Suspect]
     Active Substance: BUDESONIDE\FORMOTEROL FUMARATE DIHYDRATE
     Indication: Asthma
  4. ALVESCO [Suspect]
     Active Substance: CICLESONIDE
     Indication: Asthma
  5. CICLESONIDE [Suspect]
     Active Substance: CICLESONIDE
     Indication: Asthma
  6. PREDNISONE [Suspect]
     Active Substance: PREDNISONE
     Indication: Asthma
  7. PREDNISONE [Suspect]
     Active Substance: PREDNISONE
  8. PREDNISONE [Suspect]
     Active Substance: PREDNISONE
  9. BUDESONIDE\FORMOTEROL [Suspect]
     Active Substance: BUDESONIDE\FORMOTEROL
     Indication: Product used for unknown indication
  10. ALBUTEROL [Suspect]
     Active Substance: ALBUTEROL
     Indication: Asthma
  11. ALBUTEROL [Suspect]
     Active Substance: ALBUTEROL
     Dosage: 2 DOSAGE FORM 1 EVERY 1 DAY
  12. OLODATEROL HYDROCHLORIDE\TIOTROPIUM BROMIDE MONOHYDRATE [Suspect]
     Active Substance: OLODATEROL HYDROCHLORIDE\TIOTROPIUM BROMIDE MONOHYDRATE
     Indication: Product used for unknown indication
  13. AZITHROMYCIN ANHYDROUS [Suspect]
     Active Substance: AZITHROMYCIN ANHYDROUS
     Indication: Product used for unknown indication
  14. SITAGLIPTIN [Concomitant]
     Active Substance: SITAGLIPTIN
     Indication: Product used for unknown indication
  15. METFORMIN [Concomitant]
     Active Substance: METFORMIN HYDROCHLORIDE
     Indication: Product used for unknown indication

REACTIONS (14)
  - Drug ineffective [Unknown]
  - Myocardial infarction [Unknown]
  - Hypertension [Unknown]
  - Therapeutic product effect incomplete [Unknown]
  - Asthma [Unknown]
  - Chest discomfort [Unknown]
  - Chest pain [Unknown]
  - Cough [Unknown]
  - Dyspnoea [Unknown]
  - Type 2 diabetes mellitus [Unknown]
  - Wheezing [Unknown]
  - Blood test abnormal [Unknown]
  - Decreased activity [Unknown]
  - Full blood count abnormal [Not Recovered/Not Resolved]
